FAERS Safety Report 26098802 (Version 1)
Quarter: 2025Q4

REPORT INFORMATION
  Report Type: Spontaneous
  Country: EU (occurrence: EU)
  Receive Date: 20251127
  Receipt Date: 20251127
  Transmission Date: 20260117
  Serious: Yes (Life-Threatening, Hospitalization, Other)
  Sender: ALKEM
  Company Number: None

PATIENT
  Age: 51 Year
  Sex: Male

DRUGS (12)
  1. MYCOPHENOLATE MOFETIL [Suspect]
     Active Substance: MYCOPHENOLATE MOFETIL
     Indication: Immunosuppressant drug therapy
     Dosage: 1440 MILLIGRAM, QD
     Route: 065
  2. EVEROLIMUS [Suspect]
     Active Substance: EVEROLIMUS
     Indication: Immunosuppression
     Dosage: UNK
     Route: 065
  3. TACROLIMUS [Suspect]
     Active Substance: TACROLIMUS
     Indication: Immunosuppressant drug therapy
     Dosage: UNK
     Route: 065
  4. PIPERACILLIN SODIUM\TAZOBACTAM SODIUM [Suspect]
     Active Substance: PIPERACILLIN SODIUM\TAZOBACTAM SODIUM
     Indication: Pyrexia
     Dosage: UNK
     Route: 065
  5. GANCICLOVIR [Suspect]
     Active Substance: GANCICLOVIR
     Indication: Cytomegalovirus viraemia
     Dosage: UNK
     Route: 042
  6. HUMAN CYTOMEGALOVIRUS IMMUNE GLOBULIN [Suspect]
     Active Substance: HUMAN CYTOMEGALOVIRUS IMMUNE GLOBULIN
     Indication: Cytomegalovirus viraemia
     Dosage: UNK
     Route: 065
  7. HUMAN CYTOMEGALOVIRUS IMMUNE GLOBULIN [Suspect]
     Active Substance: HUMAN CYTOMEGALOVIRUS IMMUNE GLOBULIN
     Dosage: UNK, QD
     Route: 065
  8. HUMAN CYTOMEGALOVIRUS IMMUNE GLOBULIN [Suspect]
     Active Substance: HUMAN CYTOMEGALOVIRUS IMMUNE GLOBULIN
     Dosage: UNK, ONCE WEEKLY
     Route: 065
  9. PREDNISOLONE [Suspect]
     Active Substance: PREDNISOLONE
     Indication: Immunosuppressant drug therapy
     Dosage: UNK
     Route: 065
  10. CYCLOSPORINE [Suspect]
     Active Substance: CYCLOSPORINE
     Indication: Immunosuppressant drug therapy
     Dosage: UNK
     Route: 065
  11. VALCYTE [Suspect]
     Active Substance: VALGANCICLOVIR HYDROCHLORIDE
     Indication: Prophylaxis
     Dosage: UNK
     Route: 048
  12. VALCYTE [Suspect]
     Active Substance: VALGANCICLOVIR HYDROCHLORIDE
     Indication: Cytomegalovirus viraemia
     Dosage: UNK
     Route: 048

REACTIONS (10)
  - Malaise [Unknown]
  - Drug resistance [Unknown]
  - Leukopenia [Unknown]
  - Thrombocytopenia [Unknown]
  - Cytomegalovirus viraemia [Recovered/Resolved]
  - Pyrexia [Unknown]
  - Drug ineffective [Unknown]
  - Transplant rejection [Recovered/Resolved]
  - Diarrhoea [Recovered/Resolved]
  - Product use in unapproved indication [Unknown]
